FAERS Safety Report 14174339 (Version 2)
Quarter: 2017Q4

REPORT INFORMATION
  Report Type: Not Available
  Country: None (occurrence: US)
  Receive Date: 20171109
  Receipt Date: 20171109
  Transmission Date: 20180321
  Serious: No
  Sender: FDA-Public Use
  Company Number: US-AKORN-65711

PATIENT
  Age: 77 Year
  Sex: Female

DRUGS (1)
  1. LACTULOSE. [Suspect]
     Active Substance: LACTULOSE

REACTIONS (1)
  - Drug ineffective [None]
